FAERS Safety Report 8364318-2 (Version None)
Quarter: 2012Q2

REPORT INFORMATION
  Report Type: 
  Country: None (occurrence: None)
  Receive Date: 20120516
  Receipt Date: 20120511
  Transmission Date: 20120825
  Serious: Yes (Other)
  Sender: FDA-Public Use
  Company Number: US-CELGENEUS-163-21880-12042882

PATIENT
  Sex: Male

DRUGS (8)
  1. VICODIN [Concomitant]
     Route: 065
  2. FLOMAX [Concomitant]
     Route: 065
  3. PRILOSEC [Concomitant]
     Route: 065
  4. OXYCODONE HCL [Concomitant]
     Route: 065
  5. PROAMATINE [Concomitant]
     Route: 065
     Dates: start: 20120329
  6. REVLIMID [Suspect]
     Dosage: 25 MILLIGRAM
     Route: 048
     Dates: start: 20120315, end: 20120419
  7. LYRICA [Concomitant]
     Route: 065
  8. ACYCLOVIR [Concomitant]
     Route: 065

REACTIONS (2)
  - PLATELET COUNT DECREASED [None]
  - WHITE BLOOD CELL COUNT DECREASED [None]
